FAERS Safety Report 7528554-7 (Version None)
Quarter: 2011Q2

REPORT INFORMATION
  Report Type: 
  Country: None (occurrence: None)
  Receive Date: 20110607
  Receipt Date: 20100728
  Transmission Date: 20111010
  Serious: No
  Sender: FDA-Public Use
  Company Number: US-ASTRAZENECA-2010SE36414

PATIENT

DRUGS (1)
  1. PRILOSEC OTC [Suspect]
     Indication: DYSPEPSIA
     Dosage: UNK DOSE UNK FREQ FOR 4 DAYS
     Route: 048

REACTIONS (1)
  - OESOPHAGEAL PAIN [None]
